FAERS Safety Report 8875690 (Version 1)
Quarter: 2012Q4

REPORT INFORMATION
  Report Type: 
  Country: US (occurrence: US)
  Receive Date: 20121030
  Receipt Date: 20121030
  Transmission Date: 20130627
  Serious: Yes (Death)
  Sender: FDA-Public Use
  Company Number: US-INCYTE CORPORATION-2012IN002132

PATIENT
  Age: 70 Year
  Sex: Male
  Weight: 96.6 kg

DRUGS (1)
  1. JAKAFI [Suspect]
     Indication: MYELOFIBROSIS
     Dosage: 15 mg, qd
     Route: 048
     Dates: start: 20120831

REACTIONS (1)
  - Death [Fatal]
